FAERS Safety Report 19802763 (Version 4)
Quarter: 2025Q3

REPORT INFORMATION
  Report Type: Spontaneous
  Country: EU (occurrence: EU)
  Receive Date: 20210908
  Receipt Date: 20250827
  Transmission Date: 20251020
  Serious: Yes (Other)
  Sender: MYLAN
  Company Number: EU-002147023-NVSC2021FI068829

PATIENT
  Sex: Male
  Weight: 125 kg

DRUGS (72)
  1. METFORMIN [Suspect]
     Active Substance: METFORMIN HYDROCHLORIDE
     Indication: Type 2 diabetes mellitus
     Dosage: 2 DOSAGE FORM, QD (1 DF, BID)
     Route: 065
  2. METFORMIN [Suspect]
     Active Substance: METFORMIN HYDROCHLORIDE
     Indication: Dyslipidaemia
     Dosage: 2 DOSAGE FORM, QD (1 DF, BID)
     Route: 065
  3. METFORMIN [Suspect]
     Active Substance: METFORMIN HYDROCHLORIDE
     Indication: Hypertension
     Dosage: 2 DOSAGE FORM, QD (1 DF, BID)
     Route: 065
  4. METFORMIN [Suspect]
     Active Substance: METFORMIN HYDROCHLORIDE
     Indication: Gout
     Dosage: 2 DOSAGE FORM, QD (1 DF, BID)
     Route: 065
  5. METFORMIN [Suspect]
     Active Substance: METFORMIN HYDROCHLORIDE
     Dosage: 1 GRAM, BID
     Route: 048
  6. METFORMIN [Suspect]
     Active Substance: METFORMIN HYDROCHLORIDE
     Dosage: 1 GRAM, BID
     Route: 048
  7. METFORMIN [Suspect]
     Active Substance: METFORMIN HYDROCHLORIDE
     Dosage: 1 GRAM, BID
  8. METFORMIN [Suspect]
     Active Substance: METFORMIN HYDROCHLORIDE
     Dosage: 1 GRAM, BID
  9. METFORMIN [Suspect]
     Active Substance: METFORMIN HYDROCHLORIDE
  10. METFORMIN [Suspect]
     Active Substance: METFORMIN HYDROCHLORIDE
     Route: 048
  11. METFORMIN [Suspect]
     Active Substance: METFORMIN HYDROCHLORIDE
  12. METFORMIN [Suspect]
     Active Substance: METFORMIN HYDROCHLORIDE
     Route: 048
  13. AMLODIPINE [Suspect]
     Active Substance: AMLODIPINE BESYLATE
     Indication: Hypertension
     Dosage: 1 DOSAGE FORM, QD (1 DF, QD)
     Route: 065
  14. AMLODIPINE [Suspect]
     Active Substance: AMLODIPINE BESYLATE
     Indication: Dyslipidaemia
     Dosage: 1 DOSAGE FORM, QD (1 DF, QD)
  15. AMLODIPINE [Suspect]
     Active Substance: AMLODIPINE BESYLATE
     Indication: Gout
     Dosage: 1 DOSAGE FORM, QD (1 DF, QD)
  16. AMLODIPINE [Suspect]
     Active Substance: AMLODIPINE BESYLATE
     Indication: Type 2 diabetes mellitus
     Dosage: 1 DOSAGE FORM, QD (1 DF, QD)
     Route: 065
  17. AMLODIPINE [Suspect]
     Active Substance: AMLODIPINE BESYLATE
     Dosage: 2 DOSAGE FORM, QD (1 DF, BID)
     Route: 065
  18. AMLODIPINE [Suspect]
     Active Substance: AMLODIPINE BESYLATE
     Dosage: 2 DOSAGE FORM, QD (1 DF, BID)
  19. AMLODIPINE [Suspect]
     Active Substance: AMLODIPINE BESYLATE
     Dosage: 2 DOSAGE FORM, QD (1 DF, BID)
  20. AMLODIPINE [Suspect]
     Active Substance: AMLODIPINE BESYLATE
     Dosage: 2 DOSAGE FORM, QD (1 DF, BID)
     Route: 065
  21. AMLODIPINE [Suspect]
     Active Substance: AMLODIPINE BESYLATE
     Dosage: 5 MILLIGRAM, BID
  22. AMLODIPINE [Suspect]
     Active Substance: AMLODIPINE BESYLATE
     Dosage: 5 MILLIGRAM, BID
  23. AMLODIPINE [Suspect]
     Active Substance: AMLODIPINE BESYLATE
     Dosage: 5 MILLIGRAM, BID
     Route: 065
  24. AMLODIPINE [Suspect]
     Active Substance: AMLODIPINE BESYLATE
     Dosage: 5 MILLIGRAM, BID
     Route: 065
  25. AMLODIPINE [Suspect]
     Active Substance: AMLODIPINE BESYLATE
     Dosage: 5 MILLIGRAM, QD
  26. AMLODIPINE [Suspect]
     Active Substance: AMLODIPINE BESYLATE
     Dosage: 5 MILLIGRAM, QD
  27. AMLODIPINE [Suspect]
     Active Substance: AMLODIPINE BESYLATE
     Dosage: 5 MILLIGRAM, QD
     Route: 065
  28. AMLODIPINE [Suspect]
     Active Substance: AMLODIPINE BESYLATE
     Dosage: 5 MILLIGRAM, QD
     Route: 065
  29. SIMVASTATIN [Suspect]
     Active Substance: SIMVASTATIN
     Indication: Gout
     Dosage: 1 DOSAGE FORM, QD (1 DF, QD)
  30. SIMVASTATIN [Suspect]
     Active Substance: SIMVASTATIN
     Indication: Type 2 diabetes mellitus
     Dosage: 1 DOSAGE FORM, QD (1 DF, QD)
  31. SIMVASTATIN [Suspect]
     Active Substance: SIMVASTATIN
     Indication: Hypertension
     Dosage: 1 DOSAGE FORM, QD (1 DF, QD)
     Route: 065
  32. SIMVASTATIN [Suspect]
     Active Substance: SIMVASTATIN
     Indication: Dyslipidaemia
     Dosage: 1 DOSAGE FORM, QD (1 DF, QD)
     Route: 065
  33. SIMVASTATIN [Suspect]
     Active Substance: SIMVASTATIN
     Dosage: 40 MILLIGRAM, QD
  34. SIMVASTATIN [Suspect]
     Active Substance: SIMVASTATIN
     Dosage: 40 MILLIGRAM, QD
  35. SIMVASTATIN [Suspect]
     Active Substance: SIMVASTATIN
     Dosage: 40 MILLIGRAM, QD
     Route: 065
  36. SIMVASTATIN [Suspect]
     Active Substance: SIMVASTATIN
     Dosage: 40 MILLIGRAM, QD
     Route: 065
  37. ENALAPRIL [Suspect]
     Active Substance: ENALAPRIL
     Indication: Hypertension
     Dosage: 1 DOSAGE FORM, QD (1 DF, QD)
  38. ENALAPRIL [Suspect]
     Active Substance: ENALAPRIL
     Indication: Dyslipidaemia
     Dosage: 1 DOSAGE FORM, QD (1 DF, QD)
  39. ENALAPRIL [Suspect]
     Active Substance: ENALAPRIL
     Indication: Gout
     Dosage: 1 DOSAGE FORM, QD (1 DF, QD)
     Route: 065
  40. ENALAPRIL [Suspect]
     Active Substance: ENALAPRIL
     Indication: Type 2 diabetes mellitus
     Dosage: 1 DOSAGE FORM, QD (1 DF, QD)
     Route: 065
  41. ENALAPRIL [Suspect]
     Active Substance: ENALAPRIL
     Dosage: 20 MILLIGRAM, QD
  42. ENALAPRIL [Suspect]
     Active Substance: ENALAPRIL
     Dosage: 20 MILLIGRAM, QD
  43. ENALAPRIL [Suspect]
     Active Substance: ENALAPRIL
     Dosage: 20 MILLIGRAM, QD
     Route: 065
  44. ENALAPRIL [Suspect]
     Active Substance: ENALAPRIL
     Dosage: 20 MILLIGRAM, QD
     Route: 065
  45. ALLOPURINOL [Suspect]
     Active Substance: ALLOPURINOL
     Indication: Dyslipidaemia
     Dosage: 1 DOSAGE FORM, QD (1 DF, QD)
  46. ALLOPURINOL [Suspect]
     Active Substance: ALLOPURINOL
     Indication: Gout
     Dosage: 1 DOSAGE FORM, QD (1 DF, QD)
  47. ALLOPURINOL [Suspect]
     Active Substance: ALLOPURINOL
     Indication: Hypertension
     Dosage: 1 DOSAGE FORM, QD (1 DF, QD)
     Route: 065
  48. ALLOPURINOL [Suspect]
     Active Substance: ALLOPURINOL
     Indication: Type 2 diabetes mellitus
     Dosage: 1 DOSAGE FORM, QD (1 DF, QD)
     Route: 065
  49. ALLOPURINOL [Suspect]
     Active Substance: ALLOPURINOL
     Dosage: 100 MILLIGRAM, QD
  50. ALLOPURINOL [Suspect]
     Active Substance: ALLOPURINOL
     Dosage: 100 MILLIGRAM, QD
  51. ALLOPURINOL [Suspect]
     Active Substance: ALLOPURINOL
     Dosage: 100 MILLIGRAM, QD
     Route: 065
  52. ALLOPURINOL [Suspect]
     Active Substance: ALLOPURINOL
     Dosage: 100 MILLIGRAM, QD
     Route: 065
  53. ETORICOXIB [Concomitant]
     Active Substance: ETORICOXIB
     Indication: Musculoskeletal pain
  54. ETORICOXIB [Concomitant]
     Active Substance: ETORICOXIB
     Route: 065
  55. ETORICOXIB [Concomitant]
     Active Substance: ETORICOXIB
     Route: 065
  56. ETORICOXIB [Concomitant]
     Active Substance: ETORICOXIB
  57. ACETAMINOPHEN\ORPHENADRINE CITRATE [Concomitant]
     Active Substance: ACETAMINOPHEN\ORPHENADRINE CITRATE
     Indication: Musculoskeletal pain
  58. ACETAMINOPHEN\ORPHENADRINE CITRATE [Concomitant]
     Active Substance: ACETAMINOPHEN\ORPHENADRINE CITRATE
     Route: 065
  59. ACETAMINOPHEN\ORPHENADRINE CITRATE [Concomitant]
     Active Substance: ACETAMINOPHEN\ORPHENADRINE CITRATE
     Route: 065
  60. ACETAMINOPHEN\ORPHENADRINE CITRATE [Concomitant]
     Active Substance: ACETAMINOPHEN\ORPHENADRINE CITRATE
  61. CANDESARTAN [Concomitant]
     Active Substance: CANDESARTAN
     Dosage: 16 MILLIGRAM, QD
  62. CANDESARTAN [Concomitant]
     Active Substance: CANDESARTAN
     Dosage: 16 MILLIGRAM, QD
     Route: 065
  63. CANDESARTAN [Concomitant]
     Active Substance: CANDESARTAN
     Dosage: 16 MILLIGRAM, QD
     Route: 065
  64. CANDESARTAN [Concomitant]
     Active Substance: CANDESARTAN
     Dosage: 16 MILLIGRAM, QD
  65. DAPAGLIFLOZIN [Concomitant]
     Active Substance: DAPAGLIFLOZIN
     Dosage: 10 MILLIGRAM, QD
  66. DAPAGLIFLOZIN [Concomitant]
     Active Substance: DAPAGLIFLOZIN
     Dosage: 10 MILLIGRAM, QD
     Route: 065
  67. DAPAGLIFLOZIN [Concomitant]
     Active Substance: DAPAGLIFLOZIN
     Dosage: 10 MILLIGRAM, QD
     Route: 065
  68. DAPAGLIFLOZIN [Concomitant]
     Active Substance: DAPAGLIFLOZIN
     Dosage: 10 MILLIGRAM, QD
  69. SITAGLIPTIN [Concomitant]
     Active Substance: SITAGLIPTIN
     Dosage: 10 MILLIGRAM, QD
  70. SITAGLIPTIN [Concomitant]
     Active Substance: SITAGLIPTIN
     Dosage: 10 MILLIGRAM, QD
     Route: 065
  71. SITAGLIPTIN [Concomitant]
     Active Substance: SITAGLIPTIN
     Dosage: 10 MILLIGRAM, QD
     Route: 065
  72. SITAGLIPTIN [Concomitant]
     Active Substance: SITAGLIPTIN
     Dosage: 10 MILLIGRAM, QD

REACTIONS (6)
  - Haematochezia [Recovered/Resolved]
  - Abdominal distension [Recovered/Resolved]
  - Haemorrhoids [Recovered/Resolved]
  - Faeces discoloured [Recovered/Resolved]
  - Flatulence [Recovered/Resolved]
  - Diarrhoea [Recovered/Resolved]
